FAERS Safety Report 9866408 (Version 1)
Quarter: 2014Q1

REPORT INFORMATION
  Report Type: Report from Study
  Country: FR (occurrence: FR)
  Receive Date: 20140204
  Receipt Date: 20140204
  Transmission Date: 20141002
  Serious: Yes (Hospitalization, Other)
  Sender: FDA-Public Use
  Company Number: FR-ROCHE-1339209

PATIENT
  Age: 64 Year
  Sex: Male

DRUGS (9)
  1. RITUXIMAB [Suspect]
     Indication: RHEUMATOID ARTHRITIS
     Route: 065
     Dates: start: 20070621
  2. RITUXIMAB [Suspect]
     Route: 065
     Dates: start: 20070705
  3. RITUXIMAB [Suspect]
     Route: 065
     Dates: start: 20130314
  4. RITUXIMAB [Suspect]
     Route: 065
     Dates: start: 20130329
  5. METHOTREXATE [Concomitant]
     Route: 065
  6. SOLU-MEDROL [Concomitant]
     Route: 065
  7. SOLU-MEDROL [Concomitant]
     Route: 042
  8. PARACETAMOL [Concomitant]
  9. CRESTOR [Concomitant]

REACTIONS (4)
  - Peripheral artery bypass [Recovered/Resolved]
  - Aplastic anaemia [Unknown]
  - Anaemia macrocytic [Unknown]
  - Infusion related reaction [Not Recovered/Not Resolved]
